FAERS Safety Report 14173492 (Version 1)
Quarter: 2017Q4

REPORT INFORMATION
  Report Type: Spontaneous
  Country: US (occurrence: US)
  Receive Date: 20171109
  Receipt Date: 20171109
  Transmission Date: 20180321
  Serious: Yes (Other)
  Sender: FDA-Public Use
  Company Number: US-ALVOGEN-2017-ALVOGEN-094000

PATIENT
  Sex: Female

DRUGS (1)
  1. HYDROCHLOROTHIAZIDE AND LISINOPRIL [Suspect]
     Active Substance: HYDROCHLOROTHIAZIDE\LISINOPRIL
     Indication: HYPERTENSION
     Dosage: 10 MG / 12.5 MG
     Route: 048
     Dates: start: 2003, end: 2017

REACTIONS (1)
  - Autoimmune thyroiditis [Unknown]

NARRATIVE: CASE EVENT DATE: 2003
